FAERS Safety Report 11577507 (Version 1)
Quarter: 2015Q3

REPORT INFORMATION
  Report Type: Report from Study
  Country: US (occurrence: US)
  Receive Date: 20150930
  Receipt Date: 20150930
  Transmission Date: 20151125
  Serious: No
  Sender: FDA-Public Use
  Company Number: US-CELGENEUS-USA-2015084516

PATIENT

DRUGS (2)
  1. REVLIMID [Suspect]
     Active Substance: LENALIDOMIDE
     Indication: PRODUCT USED FOR UNKNOWN INDICATION
     Route: 048
  2. MAGIC MOUTHWASH (MILK OF MAGNESIUM/NOVOCAINE) [Suspect]
     Active Substance: MAGNESIUM HYDROXIDE\PROCAINE HYDROCHLORIDE
     Indication: ORAL PAIN
     Route: 048

REACTIONS (12)
  - Pruritus [Unknown]
  - Rash [Unknown]
  - Nausea [Unknown]
  - Throat irritation [Unknown]
  - Oral pain [Unknown]
  - Dyspepsia [Unknown]
  - Odynophagia [Unknown]
  - Ageusia [Unknown]
  - Stomatitis [Unknown]
  - Abdominal discomfort [Unknown]
  - Erythema [Unknown]
  - Hypoaesthesia oral [Unknown]
